FAERS Safety Report 8924353 (Version 1)
Quarter: 2012Q4

REPORT INFORMATION
  Report Type: 
  Country: JP (occurrence: JP)
  Receive Date: 20121126
  Receipt Date: 20121126
  Transmission Date: 20130627
  Serious: No
  Sender: FDA-Public Use
  Company Number: JP-GLAXOSMITHKLINE-B0846840A

PATIENT
  Age: 18 Year
  Sex: Female

DRUGS (4)
  1. PAXIL [Suspect]
     Indication: BIPOLAR DISORDER
     Dosage: 25MG Per day
     Route: 048
     Dates: start: 20120715
  2. LAMICTAL [Concomitant]
     Route: 048
  3. BETANAMIN [Concomitant]
     Route: 048
  4. ROZEREM [Concomitant]
     Route: 048

REACTIONS (1)
  - Poor quality sleep [Recovered/Resolved]
